FAERS Safety Report 24134237 (Version 2)
Quarter: 2024Q3

REPORT INFORMATION
  Report Type: Spontaneous
  Country: US (occurrence: US)
  Receive Date: 20240724
  Receipt Date: 20240807
  Transmission Date: 20241016
  Serious: Yes (Death, Hospitalization, Other)
  Sender: ABBVIE
  Company Number: US-ABBVIE-5848519

PATIENT
  Sex: Female
  Weight: 80.286 kg

DRUGS (19)
  1. IMBRUVICA [Suspect]
     Active Substance: IBRUTINIB
     Indication: Waldenstrom^s macroglobulinaemia
     Route: 048
     Dates: start: 2015
  2. ECOTRIN [Concomitant]
     Active Substance: ASPIRIN
     Indication: Product used for unknown indication
     Dosage: TAKE 81 MG BY MOUTH AT BEDTIME.
     Route: 048
  3. CELEXA [Concomitant]
     Active Substance: CITALOPRAM HYDROBROMIDE
     Indication: Product used for unknown indication
     Route: 048
  4. FERROUS SULFATE [Concomitant]
     Active Substance: FERROUS SULFATE
     Indication: Product used for unknown indication
     Dosage: (65 FE)
  5. NEURONTIN [Concomitant]
     Active Substance: GABAPENTIN
     Indication: Product used for unknown indication
     Route: 048
  6. REMERON [Concomitant]
     Active Substance: MIRTAZAPINE
     Indication: Product used for unknown indication
     Dosage: AT BEDTIME
     Route: 048
     Dates: start: 20190330
  7. PRILOSEC [Concomitant]
     Active Substance: OMEPRAZOLE MAGNESIUM
     Indication: Product used for unknown indication
     Route: 048
  8. VANCOCIN [Concomitant]
     Active Substance: VANCOMYCIN HYDROCHLORIDE
     Indication: Product used for unknown indication
     Dosage: VIAL-MATE INFUSION
     Route: 042
  9. LOVENOX [Concomitant]
     Active Substance: ENOXAPARIN SODIUM
     Indication: Product used for unknown indication
     Dosage: AT THE HOUR OF SLEEP
     Route: 058
  10. PEPCID [Concomitant]
     Active Substance: FAMOTIDINE
     Indication: Product used for unknown indication
     Route: 048
  11. PROTONIX [Concomitant]
     Active Substance: PANTOPRAZOLE SODIUM
     Indication: Product used for unknown indication
     Route: 048
  12. PROTONIX [Concomitant]
     Active Substance: PANTOPRAZOLE SODIUM
     Indication: Product used for unknown indication
     Dosage: STRENGTH 40 MG
     Route: 042
  13. COLACE [Concomitant]
     Active Substance: DOCUSATE SODIUM
     Indication: Product used for unknown indication
     Dosage: TIME INTERVAL: AS NECESSARY: DAILY PRN
     Route: 048
  14. SENOKOT [Concomitant]
     Active Substance: SENNOSIDES
     Indication: Product used for unknown indication
     Dosage: TIME INTERVAL: AS NECESSARY: 2 TABLET DAILY PRN
     Route: 048
  15. DIPRIVAN [Concomitant]
     Active Substance: ISOPROPYL ALCOHOL\PROPOFOL
     Indication: Product used for unknown indication
     Dosage: INFUSION ADS MED
  16. SODIUM CHLORIDE [Concomitant]
     Active Substance: SODIUM CHLORIDE
     Indication: Product used for unknown indication
     Dosage: TIME INTERVAL: AS NECESSARY: STRENGTH 0.9 %, CONTINUOUS PRN
     Route: 042
  17. LEVOPHED [Concomitant]
     Active Substance: NOREPINEPHRINE BITARTRATE
     Indication: Product used for unknown indication
     Dosage: ADS MED
     Dates: end: 20190401
  18. PROPOFOL [Concomitant]
     Active Substance: PROPOFOL
     Indication: Product used for unknown indication
  19. PROPOFOL [Concomitant]
     Active Substance: PROPOFOL
     Indication: Product used for unknown indication
     Dosage: DOSE 30 MCG/KG/MIN
     Dates: start: 20190401

REACTIONS (59)
  - Pneumonia [Fatal]
  - Unevaluable event [Fatal]
  - Traumatic lung injury [Fatal]
  - Heart rate irregular [Unknown]
  - Atrial fibrillation [Unknown]
  - Acute respiratory failure [Not Recovered/Not Resolved]
  - Hypercapnia [Not Recovered/Not Resolved]
  - Hypokalaemia [Recovered/Resolved]
  - Hyponatraemia [Not Recovered/Not Resolved]
  - Lymphadenopathy [Not Recovered/Not Resolved]
  - Pleural effusion [Not Recovered/Not Resolved]
  - Septic shock [Not Recovered/Not Resolved]
  - Arthritis [Not Recovered/Not Resolved]
  - Dizziness [Not Recovered/Not Resolved]
  - Thrombocytopenia [Not Recovered/Not Resolved]
  - Hyperhidrosis [Recovered/Resolved with Sequelae]
  - Magnetic resonance imaging head abnormal [Unknown]
  - Vision blurred [Not Recovered/Not Resolved]
  - Hyperviscosity syndrome [Unknown]
  - Dry throat [Unknown]
  - Arrhythmia [Unknown]
  - Vascular occlusion [Unknown]
  - Chills [Recovered/Resolved]
  - Leukocytosis [Unknown]
  - Lung disorder [Unknown]
  - Deafness [Not Recovered/Not Resolved]
  - Herpes zoster [Unknown]
  - Respiratory failure [Unknown]
  - Pulmonary oedema [Unknown]
  - Hypoxia [Unknown]
  - Increased viscosity of bronchial secretion [Unknown]
  - Hypoacusis [Unknown]
  - Sepsis [Recovered/Resolved]
  - Cholelithiasis [Unknown]
  - Cardiac failure congestive [Not Recovered/Not Resolved]
  - Atelectasis [Unknown]
  - Asthenia [Unknown]
  - Cognitive disorder [Unknown]
  - Spinal disorder [Unknown]
  - Mobility decreased [Unknown]
  - Gait disturbance [Unknown]
  - Asthenia [Unknown]
  - Fatigue [Unknown]
  - Balance disorder [Unknown]
  - Oedema [Unknown]
  - Insomnia [Unknown]
  - Confusional state [Unknown]
  - Agitation [Unknown]
  - Delirium [Unknown]
  - Hepatosplenomegaly [Unknown]
  - Cardiomegaly [Unknown]
  - Aortic arteriosclerosis [Unknown]
  - Spinal osteoarthritis [Unknown]
  - Toxic encephalopathy [Unknown]
  - Hilar lymphadenopathy [Unknown]
  - Respiratory acidosis [Unknown]
  - Somnolence [Unknown]
  - Dry mouth [Unknown]
  - Fall [Unknown]

NARRATIVE: CASE EVENT DATE: 20190101
